FAERS Safety Report 7460584-6 (Version None)
Quarter: 2011Q2

REPORT INFORMATION
  Report Type: 
  Country: None (occurrence: None)
  Receive Date: 20110505
  Receipt Date: 20110502
  Transmission Date: 20111010
  Serious: Yes (Hospitalization, Other)
  Sender: FDA-Public Use
  Company Number: US-PFIZER INC-US-WYE-H05647408

PATIENT
  Sex: Female
  Weight: 61.3 kg

DRUGS (9)
  1. PLAQUENIL [Suspect]
     Dosage: 200 MG 1 TIME PER 2 DAYS
     Dates: start: 20060920, end: 20070319
  2. ENBREL [Suspect]
     Indication: RHEUMATOID ARTHRITIS
     Dosage: 25 MG, WEEKLY
     Route: 058
     Dates: start: 19940119, end: 20080101
  3. ENBREL [Suspect]
     Dosage: 25 MG, WEEKLY
     Route: 058
     Dates: end: 20081220
  4. MEDROL [Suspect]
     Dosage: UNSPECIFIED
     Dates: start: 20080304, end: 20080310
  5. ARAVA [Suspect]
     Dosage: 10 MG, 2X/DAY
     Route: 048
     Dates: start: 20040119, end: 20050325
  6. PREDNISONE [Suspect]
     Dosage: UNSPECIFIED DOSE ONCE DAILY
     Route: 048
     Dates: start: 20061101
  7. AZULFIDINE [Suspect]
     Dosage: 2.0 G, 1X/DAY
     Route: 048
     Dates: start: 20080304, end: 20080606
  8. PRILOSEC [Concomitant]
     Dosage: 20 MG, 1X/DAY
  9. PLAQUENIL [Suspect]
     Dosage: 200 MG, 1X/DAY
     Dates: start: 20070319, end: 20070913

REACTIONS (9)
  - ESCHERICHIA INFECTION [None]
  - LUNG NEOPLASM [None]
  - BETA HAEMOLYTIC STREPTOCOCCAL INFECTION [None]
  - OVARIAN CYST [None]
  - PSEUDOMONAS INFECTION [None]
  - APPENDICITIS PERFORATED [None]
  - LYMPHADENOPATHY [None]
  - PNEUMONIA [None]
  - CELLULITIS [None]
